FAERS Safety Report 23910311 (Version 1)
Quarter: 2024Q2

REPORT INFORMATION
  Report Type: Spontaneous
  Country: US (occurrence: None)
  Receive Date: 20240525
  Receipt Date: 20240525
  Transmission Date: 20240716
  Serious: Yes (Hospitalization)
  Sender: FDA-Public Use
  Company Number: None

PATIENT
  Age: 70 Year
  Sex: Female
  Weight: 48.5 kg

DRUGS (3)
  1. BEVACIZUMAB [Suspect]
     Active Substance: BEVACIZUMAB
     Dates: end: 20240429
  2. CARBOPLATIN [Suspect]
     Active Substance: CARBOPLATIN
     Dates: end: 20240429
  3. PEMETREXED [Suspect]
     Active Substance: PEMETREXED
     Dates: end: 20240429

REACTIONS (7)
  - Asthenia [None]
  - Dizziness [None]
  - Decreased appetite [None]
  - Constipation [None]
  - Nausea [None]
  - Abdominal pain [None]
  - Aortic thrombosis [None]

NARRATIVE: CASE EVENT DATE: 20240508
